FAERS Safety Report 9182729 (Version 2)
Quarter: 2013Q4

REPORT INFORMATION
  Report Type: Spontaneous
  Country: JP (occurrence: JP)
  Receive Date: 20130322
  Receipt Date: 20131007
  Transmission Date: 20140711
  Serious: Yes (Other)
  Sender: FDA-Public Use
  Company Number: JP-ELI_LILLY_AND_COMPANY-JP201303004064

PATIENT
  Age: 55 Year
  Sex: Female
  Weight: 61 kg

DRUGS (10)
  1. STRATTERA [Suspect]
     Indication: ATTENTION DEFICIT/HYPERACTIVITY DISORDER
     Dosage: 20 MG, QD
     Route: 048
     Dates: start: 20121204, end: 20121210
  2. STRATTERA [Suspect]
     Dosage: 40 MG, QD
     Route: 048
     Dates: start: 20121211, end: 20121224
  3. STRATTERA [Suspect]
     Dosage: 80 MG, UNK
     Route: 048
     Dates: start: 20121225, end: 20130107
  4. STRATTERA [Suspect]
     Dosage: 120 MG, UNK
     Route: 048
     Dates: start: 20130108, end: 20130201
  5. STRATTERA [Suspect]
     Dosage: 80 MG, UNK
     Route: 048
     Dates: start: 20130202, end: 20130506
  6. STRATTERA [Suspect]
     Dosage: 100 MG, UNK
     Route: 048
     Dates: start: 20130607
  7. SODIUM VALPROATE [Concomitant]
     Dosage: 200 MG, UNK
     Route: 048
     Dates: start: 201102
  8. RAMELTEON [Concomitant]
     Indication: INSOMNIA
     Dosage: 5 MG, UNK
     Route: 048
     Dates: start: 201112
  9. ARIPIPRAZOLE [Concomitant]
     Dosage: 6 MG, UNK
     Route: 048
     Dates: start: 201205
  10. MAGNESIUM OXIDE [Concomitant]
     Indication: CONSTIPATION
     Dosage: 330 MG, UNK
     Route: 048
     Dates: start: 20121218

REACTIONS (3)
  - Loss of consciousness [Recovered/Resolved]
  - Loss of consciousness [Recovered/Resolved]
  - Head injury [Unknown]
